FAERS Safety Report 22238292 (Version 1)
Quarter: 2023Q2

REPORT INFORMATION
  Report Type: Spontaneous
  Country: US (occurrence: US)
  Receive Date: 20230421
  Receipt Date: 20230421
  Transmission Date: 20230721
  Serious: Yes (Other)
  Sender: FDA-Public Use
  Company Number: US-ALKEM LABORATORIES LIMITED-US-ALKEM-2023-02767

PATIENT
  Sex: Female

DRUGS (13)
  1. ASPIRIN [Suspect]
     Active Substance: ASPIRIN
     Indication: Product used for unknown indication
     Dosage: 81 MILLIGRAM, QD (DAILY)
     Route: 065
  2. AZATHIOPRINE [Suspect]
     Active Substance: AZATHIOPRINE
     Indication: Immunosuppressant drug therapy
     Dosage: UNK (1MG/KG (APPROXIMATELY 50-75MG))
     Route: 065
  3. AZATHIOPRINE [Suspect]
     Active Substance: AZATHIOPRINE
     Dosage: UNK (1-Y PT)
     Route: 065
  4. METHYLPREDNISOLONE [Suspect]
     Active Substance: METHYLPREDNISOLONE
     Indication: Immunosuppressant drug therapy
     Dosage: 1000 MILLIGRAM (AT THE TIME OF TRANSPLANTATION)
     Route: 065
  5. METHYLPREDNISOLONE [Suspect]
     Active Substance: METHYLPREDNISOLONE
     Dosage: 2.5 GRAM (DAY 547)
     Route: 065
  6. METHYLPREDNISOLONE [Suspect]
     Active Substance: METHYLPREDNISOLONE
     Dosage: 1.5 GRAM (DAY 616)
     Route: 065
  7. MYCOPHENOLATE MOFETIL [Suspect]
     Active Substance: MYCOPHENOLATE MOFETIL
     Indication: Immunosuppressant drug therapy
     Dosage: UNK
     Route: 065
  8. TACROLIMUS [Suspect]
     Active Substance: TACROLIMUS
     Indication: Immunosuppressant drug therapy
     Dosage: UNK (EXTENDED RELEASE)
     Route: 048
  9. TACROLIMUS [Suspect]
     Active Substance: TACROLIMUS
     Dosage: UNK (3 MONTHS POST TRANSPLANT) (EXTENDED RELEASE)
     Route: 048
  10. TACROLIMUS [Suspect]
     Active Substance: TACROLIMUS
     Dosage: UNK (1 YEAR POST TRANSPLANT) (EXTENDED RELEASE)
     Route: 048
  11. PREDNISONE [Suspect]
     Active Substance: PREDNISONE
     Indication: Immunosuppressant drug therapy
     Dosage: 15 MG/DAY (BY POSTTRANSPLANT DAY 7)
     Route: 065
  12. PREDNISONE [Suspect]
     Active Substance: PREDNISONE
     Dosage: UNK, DECREASED BY 2.5MG/D WEEKLY
     Route: 065
  13. ANTI-THYMOCYTE GLOBULIN (RABBIT) NOS [Suspect]
     Active Substance: LAPINE T-LYMPHOCYTE IMMUNE GLOBULIN
     Indication: Immunosuppressant drug therapy
     Dosage: 4.5 MILLIGRAM/KILOGRAM IN 3 DIVIDED DOSES
     Route: 065

REACTIONS (4)
  - Transplant rejection [Unknown]
  - Exposure during pregnancy [Unknown]
  - Sinusitis [Unknown]
  - Urinary tract infection [Unknown]
